FAERS Safety Report 23858179 (Version 1)
Quarter: 2024Q2

REPORT INFORMATION
  Report Type: Spontaneous
  Country: US (occurrence: None)
  Receive Date: 20240514
  Receipt Date: 20240514
  Transmission Date: 20240716
  Serious: Yes (Other)
  Sender: FDA-Public Use
  Company Number: None

PATIENT
  Age: 76 Year
  Sex: Male
  Weight: 71.55 kg

DRUGS (18)
  1. OZEMPIC [Suspect]
     Active Substance: SEMAGLUTIDE
     Indication: Diabetes mellitus
     Dosage: 0.5 INJECTION 1 PER WEEK SUBCUTANEOUS
     Route: 058
  2. OZEMPIC [Suspect]
     Active Substance: SEMAGLUTIDE
     Indication: Weight decreased
  3. BACLOFEN [Concomitant]
     Active Substance: BACLOFEN
  4. MIRTAZAPINE [Concomitant]
     Active Substance: MIRTAZAPINE
  5. BUPROPION [Concomitant]
     Active Substance: BUPROPION
  6. LISINOPRIL [Concomitant]
     Active Substance: LISINOPRIL
  7. SPIRONOLACTONE [Concomitant]
     Active Substance: SPIRONOLACTONE
  8. GABAPENTIN [Concomitant]
     Active Substance: GABAPENTIN
  9. DULOXETINE [Concomitant]
     Active Substance: DULOXETINE
  10. UNSPECIFIED INGREDIENT [Concomitant]
     Active Substance: UNSPECIFIED INGREDIENT
  11. pro vitamin [Concomitant]
  12. TYLENOL [Concomitant]
     Active Substance: ACETAMINOPHEN
  13. STOOL SOFTENER (DOCUSATE) [Concomitant]
     Active Substance: DOCUSATE
  14. CALCIUM [Concomitant]
     Active Substance: CALCIUM
  15. MELATONIN [Concomitant]
     Active Substance: MELATONIN
  16. pro biotics [Concomitant]
  17. GUAIFENESIN [Concomitant]
     Active Substance: GUAIFENESIN
  18. VITAMIN B1 [Concomitant]
     Active Substance: THIAMINE HYDROCHLORIDE

REACTIONS (2)
  - Depression [None]
  - Anger [None]

NARRATIVE: CASE EVENT DATE: 20240301
